FAERS Safety Report 6644619-6 (Version None)
Quarter: 2010Q1

REPORT INFORMATION
  Report Type: 
  Country: None (occurrence: None)
  Receive Date: 20100317
  Receipt Date: 20100304
  Transmission Date: 20100710
  Serious: Yes (Hospitalization)
  Sender: FDA-Public Use
  Company Number: 008322

PATIENT
  Sex: Female
  Weight: 65 kg

DRUGS (1)
  1. EQUASYM (EQUASYM RETARD) [Suspect]
     Dosage: (300 MG TOTAL, 15 TABLETS (20MG) OVER A PERIOD OF 3 HOURS .TOTAL DOSE 300 MG ORAL)
     Route: 048
     Dates: start: 20100304, end: 20100304

REACTIONS (5)
  - FLUSHING [None]
  - GASTROINTESTINAL SOUNDS ABNORMAL [None]
  - INTENTIONAL OVERDOSE [None]
  - PARAESTHESIA [None]
  - TACHYCARDIA [None]
